FAERS Safety Report 21215514 (Version 2)
Quarter: 2022Q3

REPORT INFORMATION
  Report Type: Spontaneous
  Country: US (occurrence: US)
  Receive Date: 20220816
  Receipt Date: 20220907
  Transmission Date: 20221026
  Serious: Yes (Hospitalization)
  Sender: FDA-Public Use
  Company Number: US-KARYOPHARM-2022KPT000921

PATIENT

DRUGS (25)
  1. XPOVIO [Suspect]
     Active Substance: SELINEXOR
     Indication: Plasma cell myeloma
     Dosage: 40 MG, 2X/WEEK
     Route: 048
     Dates: start: 20220805, end: 202208
  2. PROTONIX [Concomitant]
     Active Substance: PANTOPRAZOLE SODIUM
  3. ALPRAZOLAM [Concomitant]
     Active Substance: ALPRAZOLAM
  4. ACYCLOVIR [Concomitant]
     Active Substance: ACYCLOVIR
  5. LEVOTHYROXINE SODIUM [Concomitant]
     Active Substance: LEVOTHYROXINE SODIUM
  6. MIRTAZAPINE [Concomitant]
     Active Substance: MIRTAZAPINE
  7. SUCRALFATE [Concomitant]
     Active Substance: SUCRALFATE
  8. ZOFRAN [Concomitant]
     Active Substance: ONDANSETRON HYDROCHLORIDE
  9. SERTRALINE [Concomitant]
     Active Substance: SERTRALINE HYDROCHLORIDE
  10. TRAZODONE [Concomitant]
     Active Substance: TRAZODONE HYDROCHLORIDE
  11. DEXILANT [Concomitant]
     Active Substance: DEXLANSOPRAZOLE
  12. OXYCONTIN [Concomitant]
     Active Substance: OXYCODONE HYDROCHLORIDE
  13. EMPLICITI [Concomitant]
     Active Substance: ELOTUZUMAB
  14. DEXAMETHASONE [Concomitant]
     Active Substance: DEXAMETHASONE
  15. ATOVAQUONE [Concomitant]
     Active Substance: ATOVAQUONE
  16. LATANOPROST [Concomitant]
     Active Substance: LATANOPROST
  17. MIDODRINE [Concomitant]
     Active Substance: MIDODRINE
  18. AFRIN [OXYMETAZOLINE] [Concomitant]
  19. NYSTATIN [Concomitant]
     Active Substance: NYSTATIN
  20. CEFTRIAXONE [Concomitant]
     Active Substance: CEFTRIAXONE
  21. DRONABINOL [Concomitant]
     Active Substance: DRONABINOL
  22. GABAPENTIN [Concomitant]
     Active Substance: GABAPENTIN
  23. MEGACE [Concomitant]
     Active Substance: MEGESTROL ACETATE
  24. QUETIAPINE [Concomitant]
     Active Substance: QUETIAPINE
  25. PROMACTA [Concomitant]
     Active Substance: ELTROMBOPAG OLAMINE

REACTIONS (3)
  - Hypotension [Unknown]
  - Syncope [Unknown]
  - Dizziness [Unknown]

NARRATIVE: CASE EVENT DATE: 20220801
